FAERS Safety Report 8417658-2 (Version None)
Quarter: 2012Q2

REPORT INFORMATION
  Report Type: 
  Country: None (occurrence: None)
  Receive Date: 20120606
  Receipt Date: 20120529
  Transmission Date: 20120825
  Serious: Yes (Hospitalization)
  Sender: FDA-Public Use
  Company Number: JP-VERTEX PHARMACEUTICALS INC.-AE-2012-007323

PATIENT
  Age: 67 Year
  Sex: Male

DRUGS (11)
  1. TELAVIC (TELAPREVIR) [Suspect]
     Indication: HEPATITIS C
     Route: 048
     Dates: start: 20120309, end: 20120513
  2. PEGINTERFERON ALFA-2B [Concomitant]
     Route: 051
     Dates: start: 20120309
  3. PEGINTERFERON ALFA-2B [Concomitant]
     Route: 051
     Dates: start: 20120510, end: 20120513
  4. LANSOPRAZOLE [Concomitant]
     Route: 048
     Dates: end: 20120509
  5. RIBAVIRIN [Concomitant]
     Route: 048
     Dates: start: 20120503, end: 20120513
  6. TANATRIL [Concomitant]
     Route: 048
  7. PEGINTERFERON ALFA-2B [Concomitant]
     Route: 051
     Dates: end: 20120509
  8. NORVASC [Concomitant]
     Route: 048
  9. RIBAVIRIN [Concomitant]
     Route: 048
     Dates: start: 20120309, end: 20120502
  10. URSO 250 [Concomitant]
     Route: 048
  11. TAMSULOSIN HCL [Concomitant]
     Route: 048

REACTIONS (1)
  - PLEURAL EFFUSION [None]
